FAERS Safety Report 4678777-X (Version None)
Quarter: 2005Q2

REPORT INFORMATION
  Report Type: 
  Country: None (occurrence: None)
  Receive Date: 20050531
  Receipt Date: 20050516
  Transmission Date: 20051028
  Serious: Yes (Death)
  Sender: FDA-Public Use
  Company Number: S05-USA-02674-01

PATIENT
  Age: 71 Year
  Sex: Male

DRUGS (4)
  1. CELEXA [Suspect]
     Indication: DEPRESSION
     Dates: start: 20040501, end: 20040501
  2. TOPROL (METOPROLOL) [Suspect]
     Dates: end: 20040501
  3. DARVON [Suspect]
     Dates: end: 20040501
  4. AMBIEN [Suspect]
     Indication: INSOMNIA
     Dates: end: 20040501

REACTIONS (14)
  - ADHESION [None]
  - AORTIC VALVE REPAIR [None]
  - CEREBRAL HAEMORRHAGE [None]
  - COMPLETED SUICIDE [None]
  - DIVERTICULUM INTESTINAL [None]
  - DRUG TOXICITY [None]
  - INTENTIONAL MISUSE [None]
  - MITRAL VALVE REPAIR [None]
  - MULTIPLE DRUG OVERDOSE [None]
  - PERICARDIAL FIBROSIS [None]
  - PLEURAL FIBROSIS [None]
  - PULMONARY CONGESTION [None]
  - PULMONARY OEDEMA [None]
  - RENAL CYST [None]
